FAERS Safety Report 4649872-6 (Version None)
Quarter: 2005Q2

REPORT INFORMATION
  Report Type: 
  Country: None (occurrence: None)
  Receive Date: 20050502
  Receipt Date: 20040511
  Transmission Date: 20051028
  Serious: Yes (Life-Threatening, Hospitalization)
  Sender: FDA-Public Use
  Company Number: US-MERCK-0405USA00950

PATIENT
  Age: 47 Year
  Sex: Male
  Weight: 100 kg

DRUGS (27)
  1. EMEND [Suspect]
     Indication: PROPHYLAXIS OF NAUSEA AND VOMITING
     Route: 048
     Dates: start: 20040409, end: 20040412
  2. EMEND [Suspect]
     Route: 048
     Dates: start: 20040408, end: 20040408
  3. ZOFRAN [Concomitant]
     Route: 042
  4. DACARBAZINE [Concomitant]
     Route: 042
     Dates: start: 20040401
  5. VINBLASTINE SULFATE [Suspect]
     Route: 042
     Dates: start: 20040401
  6. PROLEUKIN [Concomitant]
     Route: 042
     Dates: start: 20040401
  7. PROLEUKIN [Concomitant]
     Route: 042
     Dates: start: 20040401
  8. PROLEUKIN [Concomitant]
     Route: 042
     Dates: start: 20040401
  9. PROLEUKIN [Concomitant]
     Route: 042
     Dates: start: 20040401
  10. PROLEUKIN [Concomitant]
     Route: 065
     Dates: start: 20040401
  11. CISPLATIN [Concomitant]
     Route: 042
     Dates: start: 20040401
  12. [THERAPY UNSPECIFIED] [Concomitant]
     Route: 065
     Dates: start: 20040401
  13. PROTONIX [Concomitant]
     Route: 065
  14. ATIVAN [Concomitant]
     Indication: NAUSEA
     Route: 065
  15. ATARAX [Concomitant]
     Route: 065
  16. BACTROBAN [Concomitant]
     Route: 065
  17. BENADRYL [Concomitant]
     Route: 065
  18. DEMEROL [Concomitant]
     Route: 065
  19. EUCERIN CREME [Concomitant]
     Route: 065
  20. INTRON A [Concomitant]
     Route: 058
  21. LOMOTIL [Concomitant]
     Route: 065
  22. NEULASTA [Concomitant]
     Route: 065
  23. REGLAN [Concomitant]
     Route: 065
  24. TYLENOL [Concomitant]
     Route: 065
  25. VASELINE [Concomitant]
     Route: 065
  26. [THERAPY UNSPECIFIED] [Concomitant]
     Route: 065
  27. ANTINEOPLASTIC (UNSPECIFIED) [Concomitant]
     Route: 065

REACTIONS (11)
  - CATHETER RELATED INFECTION [None]
  - COMA [None]
  - DRUG INTERACTION [None]
  - FATIGUE [None]
  - GROIN ABSCESS [None]
  - LETHARGY [None]
  - MEDICATION ERROR [None]
  - PANCYTOPENIA [None]
  - RENAL FAILURE [None]
  - SEPSIS [None]
  - STREPTOCOCCAL INFECTION [None]
